FAERS Safety Report 22352574 (Version 2)
Quarter: 2023Q2

REPORT INFORMATION
  Report Type: Report from Study
  Country: FR (occurrence: FR)
  Receive Date: 20230522
  Receipt Date: 20230601
  Transmission Date: 20230722
  Serious: Yes (Hospitalization, Other)
  Sender: FDA-Public Use
  Company Number: FR-CELLTRION INC.-2023FR010431

PATIENT

DRUGS (6)
  1. RITUXIMAB [Suspect]
     Active Substance: RITUXIMAB
     Indication: Product used for unknown indication
     Dosage: FIRST DOSE
     Dates: start: 20221107
  2. RITUXIMAB [Suspect]
     Active Substance: RITUXIMAB
     Dosage: UNK
     Dates: start: 20221114
  3. RITUXIMAB [Suspect]
     Active Substance: RITUXIMAB
     Dosage: UNK
     Dates: start: 20221128
  4. RITUXIMAB [Suspect]
     Active Substance: RITUXIMAB
     Dosage: UNK
     Dates: start: 20221121
  5. TAVNEOS [Suspect]
     Active Substance: AVACOPAN
     Indication: Product used for unknown indication
     Dosage: UNK
     Route: 048
     Dates: start: 20221107, end: 20230307
  6. PREDNISONE [Concomitant]
     Active Substance: PREDNISONE
     Dosage: 20-40 MG
     Dates: start: 2022

REACTIONS (10)
  - Pulmonary renal syndrome [Unknown]
  - Neuromyopathy [Unknown]
  - Hypotonia [Unknown]
  - Resuscitation [Unknown]
  - Respiratory distress [Unknown]
  - Acute pulmonary oedema [Unknown]
  - Cardiorenal syndrome [Unknown]
  - Cardiac failure [Unknown]
  - Acute respiratory failure [Unknown]
  - Hypogammaglobulinaemia [Unknown]

NARRATIVE: CASE EVENT DATE: 20230201
